FAERS Safety Report 9886365 (Version 2)
Quarter: 2014Q1

REPORT INFORMATION
  Report Type: Report from Study
  Country: VE (occurrence: VE)
  Receive Date: 20140210
  Receipt Date: 20140210
  Transmission Date: 20141002
  Serious: Yes (Other)
  Sender: FDA-Public Use
  Company Number: PHHY2013VE151033

PATIENT
  Sex: Female

DRUGS (9)
  1. ACLASTA [Suspect]
     Indication: OSTEOPOROSIS
     Dosage: 5 MG, UNK
     Route: 042
     Dates: start: 2009
  2. ACLASTA [Suspect]
     Dosage: 5 MG, UNK
     Route: 042
     Dates: start: 2010
  3. ACLASTA [Suspect]
     Dosage: 5 MG, UNK
     Route: 042
     Dates: start: 2011, end: 2011
  4. BONVIVA [Concomitant]
     Indication: OSTEOPENIA
     Dosage: 150 MG, QMO
  5. COZAAR [Concomitant]
     Indication: HYPERTENSION
     Dosage: 50 MG, UNK
     Dates: end: 2013
  6. ZANIDIP [Concomitant]
     Indication: HYPERTENSION
     Dosage: 10 MG, UNK
     Dates: end: 2013
  7. GLUCOFAGE [Concomitant]
     Indication: HYPERINSULINISM
     Dosage: 750 MG, UNK
     Dates: start: 1993
  8. LIPITOR [Concomitant]
     Indication: LIPIDS INCREASED
     Dosage: 20 MG, QW3
  9. CALCIUM [Concomitant]
     Indication: OSTEOPOROSIS
     Dosage: UNK UKN, UNK

REACTIONS (5)
  - Thyroid neoplasm [Recovered/Resolved]
  - Thyroid cyst [Recovered/Resolved]
  - Tooth fracture [Recovered/Resolved]
  - Oedema mouth [Recovered/Resolved]
  - Eyelid ptosis [Recovered/Resolved]
